FAERS Safety Report 20165102 (Version 3)
Quarter: 2022Q1

REPORT INFORMATION
  Report Type: Spontaneous
  Country: US (occurrence: US)
  Receive Date: 20211209
  Receipt Date: 20220223
  Transmission Date: 20220424
  Serious: No
  Sender: FDA-Public Use
  Company Number: US-UNITED THERAPEUTICS-UNT-2021-024770

PATIENT
  Sex: Female
  Weight: 63.492 kg

DRUGS (8)
  1. REMODULIN [Suspect]
     Active Substance: TREPROSTINIL
     Indication: Pulmonary arterial hypertension
     Dosage: UNK UNK, CONTINUING
     Route: 058
     Dates: start: 20201013
  2. REMODULIN [Suspect]
     Active Substance: TREPROSTINIL
     Dosage: 0.0582 ?G/KG, CONTINUING , (PRE-FILLED WITH 2.2 ML PER CASSETTE, SQ AT RATE OF 22 MCL PER HOUR)
     Route: 058
     Dates: start: 2021
  3. REMODULIN [Suspect]
     Active Substance: TREPROSTINIL
     Dosage: 0.0688 ?G/KG, CONTINUING
     Route: 058
     Dates: start: 2021
  4. REMODULIN [Suspect]
     Active Substance: TREPROSTINIL
     Dosage: UNK UNK, CONTINUING
     Route: 058
     Dates: start: 20211116
  5. REMODULIN [Suspect]
     Active Substance: TREPROSTINIL
     Dosage: 0.0608 ?G/KG, CONTINUING , (PRE-FILLED WITH 2.2 ML PER CASSETTE, PUMP RATE OF 23 MCL PER HOUR)
     Route: 058
  6. REMODULIN [Suspect]
     Active Substance: TREPROSTINIL
     Dosage: UNK, CONTINUING
     Route: 058
  7. ADCIRCA [Concomitant]
     Active Substance: TADALAFIL
     Indication: Pulmonary arterial hypertension
     Dosage: UNK
     Route: 065
  8. LETAIRIS [Concomitant]
     Active Substance: AMBRISENTAN
     Indication: Product used for unknown indication
     Dosage: UNK
     Route: 065

REACTIONS (9)
  - Infusion site erythema [Unknown]
  - Infusion site pain [Unknown]
  - Dyspnoea [Not Recovered/Not Resolved]
  - Pain in extremity [Unknown]
  - Device malfunction [Recovered/Resolved]
  - Product odour abnormal [Unknown]
  - Device failure [Recovered/Resolved]
  - Device failure [Not Recovered/Not Resolved]
  - Device failure [Unknown]

NARRATIVE: CASE EVENT DATE: 20210101
